FAERS Safety Report 24382046 (Version 4)
Quarter: 2024Q4

REPORT INFORMATION
  Report Type: Report from Study
  Country: DE (occurrence: DE)
  Receive Date: 20241001
  Receipt Date: 20241227
  Transmission Date: 20250115
  Serious: No
  Sender: NOVARTIS
  Company Number: DE-DCGMA-24203823

PATIENT
  Age: 55 Year
  Sex: Female
  Weight: 70 kg

DRUGS (11)
  1. KESIMPTA [Suspect]
     Active Substance: OFATUMUMAB
     Indication: Relapsing-remitting multiple sclerosis
     Dosage: 20 MG
     Route: 058
     Dates: start: 202404
  2. KESIMPTA [Suspect]
     Active Substance: OFATUMUMAB
     Indication: Multiple sclerosis
  3. AJOVY [Concomitant]
     Active Substance: FREMANEZUMAB-VFRM
     Indication: Migraine
     Dosage: 225 MG, QMO (1.5 ML) (EVERY 30TH DAY/ EVERY 4 WEEKS)
     Route: 058
     Dates: end: 2021
  4. AJOVY [Concomitant]
     Active Substance: FREMANEZUMAB-VFRM
     Dosage: 225 MG, QMO (1.5 ML) [(EVERY 30TH DAY/ EVERY 4 WEEKS) IN THE MORNING (1-0-0)]
     Route: 058
     Dates: start: 20240114, end: 20240114
  5. AJOVY [Concomitant]
     Active Substance: FREMANEZUMAB-VFRM
     Dosage: 225 MG, QMO (1.5 ML) [(EVERY 30TH DAY/ EVERY 4 WEEKS) IN THE MORNING (1-0-0)]
     Route: 058
     Dates: start: 20240211
  6. VITAMIN D3 [Concomitant]
     Active Substance: CHOLECALCIFEROL
     Indication: Product used for unknown indication
     Dosage: 1000 IU (TWICE IN THE MORNING (2-0-0-0))
     Route: 065
  7. OMEGA 3 BIOMO [Concomitant]
     Indication: Product used for unknown indication
     Dosage: 1000 MG, QD [ONCE IN THE MORNING  (1-0-0-0), DURING THE MEAL]
     Route: 065
  8. ACETAMINOPHEN [Concomitant]
     Active Substance: ACETAMINOPHEN
     Indication: Product used for unknown indication
     Dosage: 500 MG, PRN (8X PER MONTH)
     Route: 065
  9. METHYLPREDNISOLONE [Concomitant]
     Active Substance: METHYLPREDNISOLONE
     Indication: Product used for unknown indication
     Dosage: 1 G, QD
     Route: 051
  10. BLACK COHOSH [Concomitant]
     Active Substance: BLACK COHOSH
     Indication: Product used for unknown indication
     Dosage: UNK, QD [ONCE IN THE MORNING, ONCE AT NOON (1-0-1-0)]
     Route: 065
  11. SUMATRIPTAN [Concomitant]
     Active Substance: SUMATRIPTAN
     Indication: Product used for unknown indication
     Dosage: UNK, PRN (50) (IF NEEDED, 1-2 PER MONTH)
     Route: 065

REACTIONS (9)
  - Pulpitis dental [Recovered/Resolved]
  - Toothache [Recovered/Resolved]
  - Influenza like illness [Unknown]
  - Pyrexia [Unknown]
  - Fatigue [Unknown]
  - Tongue blistering [Recovered/Resolved]
  - Condition aggravated [Unknown]
  - Tooth disorder [Unknown]
  - Aphasia [Unknown]

NARRATIVE: CASE EVENT DATE: 20240401
